FAERS Safety Report 5145976-2 (Version None)
Quarter: 2006Q4

REPORT INFORMATION
  Report Type: 
  Country: None (occurrence: None)
  Receive Date: 20061108
  Receipt Date: 20061017
  Transmission Date: 20070319
  Serious: Yes (Other)
  Sender: FDA-Public Use
  Company Number: PHBS2006JP16305

PATIENT
  Age: 72 Year
  Sex: Male
  Weight: 52 kg

DRUGS (2)
  1. DIOVAN [Suspect]
     Indication: CARDIAC FAILURE
     Dosage: 80 MG, UNK
     Route: 048
     Dates: start: 20060830, end: 20061014
  2. LUPRAC [Suspect]
     Indication: CARDIAC FAILURE
     Dosage: 4 MG, QD
     Route: 048
     Dates: start: 20060830, end: 20061014

REACTIONS (2)
  - DYSPNOEA [None]
  - INTERSTITIAL LUNG DISEASE [None]
